FAERS Safety Report 6445569 (Version 3)
Quarter: 2013Q1

REPORT INFORMATION
  Report Type: Spontaneous
  Country: DE (occurrence: US)
  Receive Date: 20061201
  Receipt Date: 20130205
  Transmission Date: 20140127
  Serious: Yes (Other)
  Sender: FDA-Public Use
  Company Number: GB-PFIZER INC-2006144754

PATIENT
  Age: 31 Year
  Sex: Female

DRUGS (4)
  1. ALPRAZOLAM [Suspect]
     Indication: PANIC DISORDER
     Dosage: 0.5 MG, 2X/DAY
  2. SERTRALINE HCL [Suspect]
     Indication: PANIC DISORDER
     Dosage: 25 MG, DAILY
  3. SERTRALINE HCL [Suspect]
     Dosage: 50 MG, DAILY
  4. SEROXAT [Suspect]
     Indication: PANIC DISORDER
     Dosage: 20 MG, DAILY
     Route: 048

REACTIONS (12)
  - Intentional overdose [Unknown]
  - Homicide [Unknown]
  - Suicide attempt [Unknown]
  - Suicidal ideation [Unknown]
  - Alcohol poisoning [Unknown]
  - Depression [Unknown]
  - Agitation [Unknown]
  - Restlessness [Unknown]
  - Tension [Unknown]
  - Akathisia [Unknown]
  - Alcohol use [Unknown]
  - Obsessive-compulsive personality disorder [Unknown]
